FAERS Safety Report 25094032 (Version 1)
Quarter: 2025Q1

REPORT INFORMATION
  Report Type: Spontaneous
  Country: US (occurrence: US)
  Receive Date: 20250319
  Receipt Date: 20250319
  Transmission Date: 20250408
  Serious: Yes (Death, Other)
  Sender: SANDOZ
  Company Number: US-SANDOZ-SDZ2025US016825

PATIENT
  Age: 73 Year
  Sex: Male

DRUGS (2)
  1. HYCAMTIN [Suspect]
     Active Substance: TOPOTECAN HYDROCHLORIDE
     Indication: Prostate cancer
     Dosage: -TAKE 2 CAPSULES BY MOUTH ONCE DAILY ON DAYS 1THROUGH 5 OF EVEY 21DAY CYCLE
     Route: 048
     Dates: start: 202404
  2. HYCAMTIN [Suspect]
     Active Substance: TOPOTECAN HYDROCHLORIDE
     Indication: Prostate cancer
     Dosage: -TAKE 4 CAPSULES BY MOUTH ONCE DAILY ON DAYS LTHROUGH 5 OF EVERY 21DAY CYCLE
     Route: 048
     Dates: start: 202404

REACTIONS (1)
  - Death [Fatal]

NARRATIVE: CASE EVENT DATE: 20250113
